FAERS Safety Report 21665291 (Version 1)
Quarter: 2022Q4

REPORT INFORMATION
  Report Type: Spontaneous
  Country: CN (occurrence: CN)
  Receive Date: 20221201
  Receipt Date: 20221201
  Transmission Date: 20230113
  Serious: Yes (Other)
  Sender: FDA-Public Use
  Company Number: None

PATIENT
  Age: 30 Year
  Sex: Female
  Weight: 60 kg

DRUGS (5)
  1. MANNITOL [Suspect]
     Active Substance: MANNITOL
     Indication: Intervertebral disc protrusion
     Dosage: 250 ML, ONCE DAILY
     Route: 041
     Dates: start: 20221118, end: 20221121
  2. SODIUM CHLORIDE [Suspect]
     Active Substance: SODIUM CHLORIDE
     Indication: Medication dilution
     Dosage: 100 ML, ONCE DAILY
     Route: 041
     Dates: start: 20221118, end: 20221121
  3. DEXTROSE [Suspect]
     Active Substance: DEXTROSE
     Indication: Medication dilution
     Dosage: 250 ML, ONCE DAILY
     Route: 041
     Dates: start: 20221118, end: 20221121
  4. PREDNISOLONE [Suspect]
     Active Substance: PREDNISOLONE
     Indication: Intervertebral disc protrusion
     Dosage: 20 MG, ONCE DAILY, MANUFACTURER: XI^AN LIJUN PHARMACEUTICAL CO., LTD
     Route: 041
     Dates: start: 20221118, end: 20221121
  5. LORNOXICAM [Suspect]
     Active Substance: LORNOXICAM
     Indication: Intervertebral disc protrusion
     Dosage: 8 MG, ONCE DAILY, MANUFACTURER: HARBIN SANLIAN PHARMACEUTICAL CO., LTD.
     Route: 041
     Dates: start: 20221118, end: 20221121

REACTIONS (3)
  - Presyncope [Recovered/Resolved]
  - Chest discomfort [Recovered/Resolved]
  - Nausea [Recovered/Resolved]

NARRATIVE: CASE EVENT DATE: 20221121
